FAERS Safety Report 9129769 (Version 1)
Quarter: 2013Q1

REPORT INFORMATION
  Report Type: Spontaneous
  Country: ES (occurrence: ES)
  Receive Date: 20130228
  Receipt Date: 20130228
  Transmission Date: 20140127
  Serious: Yes (Hospitalization)
  Sender: FDA-Public Use
  Company Number: ES-ELI_LILLY_AND_COMPANY-ES201302007782

PATIENT
  Sex: Male

DRUGS (1)
  1. FORSTEO [Suspect]
     Dosage: UNK, UNKNOWN

REACTIONS (1)
  - Varicose vein ruptured [Unknown]
